FAERS Safety Report 4684534-0 (Version None)
Quarter: 2005Q2

REPORT INFORMATION
  Report Type: 
  Country: None (occurrence: None)
  Receive Date: 20050603
  Receipt Date: 20050523
  Transmission Date: 20051028
  Serious: Yes (Other)
  Sender: FDA-Public Use
  Company Number: 2005072160

PATIENT
  Age: 54 Year
  Sex: Female
  Weight: 93.441 kg

DRUGS (11)
  1. BEXTRA [Suspect]
     Indication: OSTEOARTHRITIS
     Dosage: 20 MG (20 MG, 1 IN 1 D), ORAL
     Route: 048
     Dates: start: 20050101, end: 20050201
  2. FUROSEMIDE [Concomitant]
  3. ATENOLOL [Concomitant]
  4. VALSARTAN [Concomitant]
  5. VERAPAMIL HCL [Concomitant]
  6. LEVOTHYROXINE SODIUM [Concomitant]
  7. SERTRALINE HCL [Concomitant]
  8. POTASSIUM CHLORIDE [Concomitant]
  9. PANTOPRAZOLE SODIUM [Concomitant]
  10. SIMVASTATIN [Concomitant]
  11. AMITRIPTYLINE HYDROCHLORIDE [Concomitant]

REACTIONS (7)
  - CHEST DISCOMFORT [None]
  - DYSPNOEA [None]
  - EYE SWELLING [None]
  - FLUID RETENTION [None]
  - HEART RATE INCREASED [None]
  - SWELLING [None]
  - URINARY TRACT DISORDER [None]
